FAERS Safety Report 9659753 (Version 1)
Quarter: 2013Q4

REPORT INFORMATION
  Report Type: Spontaneous
  Country: US (occurrence: None)
  Receive Date: 20131029
  Receipt Date: 20131029
  Transmission Date: 20140711
  Serious: Yes (Death, Hospitalization)
  Sender: FDA-Public Use
  Company Number: B0935589A

PATIENT
  Age: 24 Year
  Sex: Female

DRUGS (5)
  1. ACYCLOVIR (FORMULATION UNKNOWN) (GENERIC) (ACYCLOVIR) [Suspect]
     Indication: HERPES SIMPLEX
     Dosage: 10 MG/KG / THREE TIMES PER DAY / INTRA
  2. TACROLIMUS (FORMUALTION UNKNOWN) (TACROLIMUS) [Suspect]
     Indication: IMMUNOSUPPRESSION
  3. PREDNISONE [Concomitant]
  4. MYCOPHENOLATE MOFETIL [Concomitant]
  5. ANTIBACTERIAL [Concomitant]

REACTIONS (11)
  - Renal failure [None]
  - Abdominal pain [None]
  - Vaginal discharge [None]
  - Sexual abuse [None]
  - Pneumonia [None]
  - Leukopenia [None]
  - Hepatic function abnormal [None]
  - Cardiac failure [None]
  - Cardiogenic shock [None]
  - Haemodialysis [None]
  - Upper gastrointestinal haemorrhage [None]
